APPROVED DRUG PRODUCT: VERSED
Active Ingredient: MIDAZOLAM HYDROCHLORIDE
Strength: EQ 2MG BASE/ML **Federal Register determination that product was not discontinued or withdrawn for safety or effectiveness reasons**
Dosage Form/Route: SYRUP;ORAL
Application: N020942 | Product #001
Applicant: HOFFMANN LA ROCHE INC
Approved: Oct 15, 1998 | RLD: Yes | RS: No | Type: DISCN